FAERS Safety Report 6868348-9 (Version None)
Quarter: 2010Q3

REPORT INFORMATION
  Report Type: 
  Country: None (occurrence: None)
  Receive Date: 20100722
  Receipt Date: 20080717
  Transmission Date: 20110219
  Serious: No
  Sender: FDA-Public Use
  Company Number: US-PFIZER INC-2008042691

PATIENT
  Sex: Female
  Weight: 62.3 kg

DRUGS (11)
  1. CHANTIX [Suspect]
     Indication: SMOKING CESSATION THERAPY
     Route: 048
     Dates: start: 20080319, end: 20080324
  2. LIPITOR [Concomitant]
  3. LOPRESSOR [Concomitant]
  4. DIGOXIN [Concomitant]
  5. NIACIN [Concomitant]
  6. PRINIVIL [Concomitant]
  7. COMBIVENT [Concomitant]
  8. FLOVENT [Concomitant]
  9. MONTELUKAST SODIUM [Concomitant]
  10. NORVASC [Concomitant]
  11. LESCOL [Concomitant]

REACTIONS (2)
  - ABNORMAL DREAMS [None]
  - DEPRESSION [None]
